FAERS Safety Report 8139600 (Version 2)
Quarter: 2013Q1

REPORT INFORMATION
  Report Type: Spontaneous
  Country: US (occurrence: US)
  Receive Date: 20110916
  Receipt Date: 20121218
  Transmission Date: 20140127
  Serious: Yes (Other)
  Sender: FDA-Public Use
  Company Number: PHEH2011US04110

PATIENT
  Age: 81 Year
  Sex: Male

DRUGS (11)
  1. ZOMETA (ZOLEDRONATE) UNKNOWN [Suspect]
     Indication: METASTASES TO BONE
     Dosage: 4 MG, Q3
     Route: 042
  2. PACERONE (AMIODARONE HYDROCHLORIDE) [Concomitant]
  3. ALBUTEROL (SALUTAMOL) INHALER [Concomitant]
  4. METOPROLOL (METOPROLOL) [Concomitant]
  5. MAGACE (MEGESTROL ACETATE) [Concomitant]
  6. LOSARTAN (LOSARTAN) [Concomitant]
  7. GLUCOSAMINE (GLUCOSAMINE) [Concomitant]
  8. ADVAIR (FLUTICASONE PROPIONATE, SALMETEROL XINAFOATE) INHALER [Concomitant]
  9. NIFEDIPINE (NIFEDIPINE) [Concomitant]
  10. OMEPRAZOLE (OMEPRAZOLE) [Concomitant]
  11. OXYCODONE (OXYCODONE) [Concomitant]

REACTIONS (1)
  - Osteonecrosis of jaw [Unknown]
